FAERS Safety Report 24379554 (Version 1)
Quarter: 2024Q3

REPORT INFORMATION
  Report Type: Spontaneous
  Country: PL (occurrence: PL)
  Receive Date: 20240930
  Receipt Date: 20240930
  Transmission Date: 20241016
  Serious: Yes (Other)
  Sender: ROCHE
  Company Number: PL-ROCHE-3574777

PATIENT
  Age: 32 Year
  Sex: Female

DRUGS (1)
  1. AVASTIN [Suspect]
     Active Substance: BEVACIZUMAB
     Indication: Gastrointestinal carcinoma
     Route: 065

REACTIONS (1)
  - Disease progression [Not Recovered/Not Resolved]
